FAERS Safety Report 4692330-3 (Version None)
Quarter: 2005Q2

REPORT INFORMATION
  Report Type: 
  Country: None (occurrence: None)
  Receive Date: 20050614
  Receipt Date: 20050610
  Transmission Date: 20051028
  Serious: Yes (Other)
  Sender: FDA-Public Use
  Company Number: TCI2005A01404

PATIENT
  Age: 75 Year
  Sex: Male

DRUGS (7)
  1. LANSAP 800 (LANSOPRAZOLE, CLARITHROMYCIN, AMOXICILLIN) (PREPARATION FO [Suspect]
     Indication: GASTRIC ULCER
     Dosage: SEE IMAGE
     Route: 048
     Dates: start: 20041105, end: 20041105
  2. LANSAP 800 (LANSOPRAZOLE, CLARITHROMYCIN, AMOXICILLIN) (PREPARATION FO [Suspect]
     Indication: HELICOBACTER INFECTION
     Dosage: SEE IMAGE
     Route: 048
     Dates: start: 20041105, end: 20041105
  3. LANSAP 800 (LANSOPRAZOLE, CLARITHROMYCIN, AMOXICILLIN) (PREPARATION FO [Suspect]
     Indication: GASTRIC ULCER
     Dosage: SEE IMAGE
     Route: 048
     Dates: start: 20041106, end: 20041106
  4. LANSAP 800 (LANSOPRAZOLE, CLARITHROMYCIN, AMOXICILLIN) (PREPARATION FO [Suspect]
     Indication: HELICOBACTER INFECTION
     Dosage: SEE IMAGE
     Route: 048
     Dates: start: 20041106, end: 20041106
  5. TEGRETOL [Concomitant]
  6. DEPAS (ETIZOLAM) (TABLETS) [Concomitant]
  7. JUVELA NICOTINATE (TOCOPHERYL NICOTINATE) (CAPSULES) [Concomitant]

REACTIONS (10)
  - ABDOMINAL PAIN LOWER [None]
  - ABDOMINAL PAIN UPPER [None]
  - CONDITION AGGRAVATED [None]
  - DIARRHOEA [None]
  - GASTRIC ULCER [None]
  - ORAL INTAKE REDUCED [None]
  - PYLORIC STENOSIS [None]
  - SCAR [None]
  - VOMITING [None]
  - WEIGHT DECREASED [None]
